FAERS Safety Report 10494549 (Version 2)
Quarter: 2014Q4

REPORT INFORMATION
  Report Type: Spontaneous
  Country: US (occurrence: US)
  Receive Date: 20141003
  Receipt Date: 20141003
  Transmission Date: 20150528
  Serious: Yes (Hospitalization)
  Sender: FDA-Public Use
  Company Number: US-PERRIGO-14US009509

PATIENT
  Age: 82 Year
  Sex: Female
  Weight: 90.7 kg

DRUGS (4)
  1. GUAIFENESIN 600 MG 498 [Suspect]
     Active Substance: GUAIFENESIN
     Indication: SECRETION DISCHARGE
     Dosage: 1200 MG, SINGLE
     Route: 048
     Dates: start: 20140920, end: 20140920
  2. GUAIFENESIN 600 MG 498 [Suspect]
     Active Substance: GUAIFENESIN
     Indication: DYSPNOEA
     Dosage: 1200 MG, EVERY 12 HOURS
     Route: 048
     Dates: start: 20140921, end: 20140921
  3. GUAIFENESIN 600 MG 498 [Suspect]
     Active Substance: GUAIFENESIN
     Indication: SENSATION OF FOREIGN BODY
  4. DRUGS USED IN DIABETES [Concomitant]
     Active Substance: UNSPECIFIED INGREDIENT
     Indication: DIABETES MELLITUS
     Dosage: UNK
     Route: 065

REACTIONS (9)
  - Drug ineffective [Unknown]
  - Dyspnoea [None]
  - Dizziness [Not Recovered/Not Resolved]
  - Condition aggravated [Recovering/Resolving]
  - Fatigue [Not Recovered/Not Resolved]
  - Drug ineffective for unapproved indication [Unknown]
  - Cough [None]
  - Hypersensitivity [None]
  - Fungal infection [None]

NARRATIVE: CASE EVENT DATE: 20140920
